FAERS Safety Report 4983019-1 (Version None)
Quarter: 2006Q2

REPORT INFORMATION
  Report Type: 
  Country: None (occurrence: None)
  Receive Date: 20060420
  Receipt Date: 20060407
  Transmission Date: 20061013
  Serious: Yes (Other)
  Sender: FDA-Public Use
  Company Number: 2006049215

PATIENT
  Sex: Female

DRUGS (4)
  1. LYRICA [Suspect]
     Indication: ILL-DEFINED DISORDER
     Dosage: 150 MG (75 MG, 2 IN 1 D)
  2. MORPHINE SULFATE [Concomitant]
  3. LORTAB [Concomitant]
  4. SOMA [Concomitant]

REACTIONS (2)
  - AFFECT LABILITY [None]
  - PSYCHOTIC DISORDER [None]
